FAERS Safety Report 25339994 (Version 1)
Quarter: 2025Q2

REPORT INFORMATION
  Report Type: Spontaneous
  Country: GB (occurrence: GB)
  Receive Date: 20250521
  Receipt Date: 20250521
  Transmission Date: 20250717
  Serious: Yes (Hospitalization)
  Sender: TEVA
  Company Number: GB-KRKA-GB2025K08347SPO

PATIENT
  Age: 76 Year
  Sex: Male

DRUGS (17)
  1. LANSOPRAZOLE [Suspect]
     Active Substance: LANSOPRAZOLE
     Indication: Gastrooesophageal reflux disease
     Route: 048
     Dates: start: 20210214, end: 20250324
  2. ATORVASTATIN [Concomitant]
     Active Substance: ATORVASTATIN
     Indication: Hypercholesterolaemia
     Dosage: 20 MG, 1X PER DAY
     Route: 048
     Dates: start: 202107
  3. ACORAMIDIS [Concomitant]
     Active Substance: ACORAMIDIS
     Indication: Product used for unknown indication
     Route: 065
     Dates: start: 20221216, end: 20250323
  4. WARFARIN [Concomitant]
     Active Substance: WARFARIN
     Indication: Atrial fibrillation
     Dosage: 9 MG, 1X PER DAY
     Route: 048
     Dates: start: 202303, end: 2025
  5. PULMICORT TURBUHALER [Concomitant]
     Active Substance: BUDESONIDE
     Indication: Seasonal allergy
     Route: 065
  6. CALCIUM CARBONATE\CHOLECALCIFEROL [Concomitant]
     Active Substance: CALCIUM CARBONATE\CHOLECALCIFEROL
     Indication: Product used for unknown indication
     Dosage: 400 UNITS / 1.5 G, 2X PER DAY
     Route: 048
  7. SULFASALAZINE [Concomitant]
     Active Substance: SULFASALAZINE
     Indication: Colitis ulcerative
     Dosage: 500 MG, 2X PER DAY
     Route: 048
  8. LORATADINE [Concomitant]
     Active Substance: LORATADINE
     Indication: Seasonal allergy
     Dosage: 10 MG, 1X PER DAY
     Route: 048
  9. FUROSEMIDE [Concomitant]
     Active Substance: FUROSEMIDE
     Indication: Cardiac amyloidosis
     Dosage: 40 MG, 2X PER DAY
     Route: 048
     Dates: start: 202501, end: 202503
  10. CARBAMAZEPINE [Suspect]
     Active Substance: CARBAMAZEPINE
     Indication: Seizure
     Dosage: 200 MG IN THE MORNING AND 100 MG IN THE AFTERNOON
     Route: 048
     Dates: end: 202503
  11. CARBAMAZEPINE [Suspect]
     Active Substance: CARBAMAZEPINE
     Indication: Seizure
     Dosage: 200 MG IN THE MORNING AND 100 MG IN THE AFTERNOON
     Route: 048
     Dates: end: 202503
  12. TADALAFIL [Concomitant]
     Active Substance: TADALAFIL
     Indication: Erectile dysfunction
     Route: 048
  13. CALCIUM CARBONATE\CHOLECALCIFEROL [Concomitant]
     Active Substance: CALCIUM CARBONATE\CHOLECALCIFEROL
     Indication: Femur fracture
     Dosage: 2X PER DAY
     Route: 048
     Dates: start: 20220909
  14. ALENDRONIC ACID [Concomitant]
     Active Substance: ALENDRONIC ACID
     Indication: Fall
     Dosage: 70 MG, PER WEEK (ON TUESDAYS)
     Route: 048
     Dates: start: 20221123
  15. DAPAGLIFLOZIN [Concomitant]
     Active Substance: DAPAGLIFLOZIN
     Indication: Cardiac amyloidosis
     Dosage: 10 MG, 1X PER DAY
     Route: 048
     Dates: start: 20230518
  16. SPIRONOLACTONE [Concomitant]
     Active Substance: SPIRONOLACTONE
     Indication: Cardiac amyloidosis
     Route: 048
     Dates: start: 202210, end: 2025
  17. RAMIPRIL [Concomitant]
     Active Substance: RAMIPRIL
     Indication: Hypertension
     Dosage: 1.25 MG, 1X PER DAY
     Route: 048
     Dates: end: 2025

REACTIONS (8)
  - Inappropriate antidiuretic hormone secretion [Recovered/Resolved]
  - Hyponatraemia [Unknown]
  - Asthenia [Unknown]
  - Dyspnoea [Unknown]
  - Iron deficiency anaemia [Recovered/Resolved]
  - Hypotension [Unknown]
  - Somnolence [Unknown]
  - Cough [Unknown]

NARRATIVE: CASE EVENT DATE: 20240607
